FAERS Safety Report 16143732 (Version 1)
Quarter: 2019Q2

REPORT INFORMATION
  Report Type: Spontaneous
  Country: CA (occurrence: CA)
  Receive Date: 20190401
  Receipt Date: 20190401
  Transmission Date: 20190711
  Serious: Yes (Other)
  Sender: FDA-Public Use
  Company Number: CA-PFIZER INC-2019130978

PATIENT
  Age: 24 Year
  Sex: Female

DRUGS (42)
  1. DEPO-PROVERA [Suspect]
     Active Substance: MEDROXYPROGESTERONE ACETATE
     Dosage: 150 MG/ML, UNK
     Dates: start: 20031027, end: 20031027
  2. DEPO-PROVERA [Suspect]
     Active Substance: MEDROXYPROGESTERONE ACETATE
     Dosage: 150 MG/ML, UNK
     Dates: start: 20060119, end: 20060119
  3. CELESTODERM [Concomitant]
     Active Substance: BETAMETHASONE VALERATE
     Dosage: UNK
     Dates: start: 20030902
  4. PLAN B [Concomitant]
     Active Substance: LEVONORGESTREL
     Dosage: 0.75 MG, UNK
     Dates: start: 20020826
  5. CIPRO [Concomitant]
     Active Substance: CIPROFLOXACIN HYDROCHLORIDE
     Dosage: 250 MG, UNK
     Dates: start: 20020212
  6. PROFLOX CL [Concomitant]
     Dosage: 500 MG, UNK
     Dates: start: 20091111
  7. ATIVAN [Concomitant]
     Active Substance: LORAZEPAM
     Dosage: 0.5 MG, UNK
     Dates: start: 20090827
  8. DEPO-PROVERA [Suspect]
     Active Substance: MEDROXYPROGESTERONE ACETATE
     Dosage: 150 MG/ML, UNK
     Dates: start: 20041222, end: 20041222
  9. DEPO-PROVERA [Suspect]
     Active Substance: MEDROXYPROGESTERONE ACETATE
     Dosage: 150 MG/ML, UNK
     Dates: start: 20060626, end: 20060626
  10. HAVRIX [Concomitant]
     Active Substance: HEPATITIS A VIRUS STRAIN HM175 ANTIGEN (FORMALDEHYDE INACTIVATED)
     Dosage: UNK
     Dates: start: 20090901
  11. CIPRO XL [Concomitant]
     Active Substance: CIPROFLOXACIN\CIPROFLOXACIN HYDROCHLORIDE
     Dosage: 500 MG, UNK
     Dates: start: 20060419
  12. MISOPROSTOL. [Concomitant]
     Active Substance: MISOPROSTOL
     Dosage: 200 UG, UNK
     Dates: start: 20061122
  13. ZELNORM [Concomitant]
     Active Substance: TEGASEROD MALEATE
     Dosage: 6 MG, UNK
     Dates: start: 20051003
  14. NOVO V-K [Concomitant]
     Dosage: 300 MG, UNK
     Dates: start: 19970203
  15. DALACIN T [Concomitant]
     Active Substance: CLINDAMYCIN PHOSPHATE
     Dosage: UNK
     Dates: start: 20010419
  16. DEPO-PROVERA [Suspect]
     Active Substance: MEDROXYPROGESTERONE ACETATE
     Dosage: 150 MG/ML, UNK
     Dates: start: 20040609, end: 20040609
  17. DEPO-PROVERA [Suspect]
     Active Substance: MEDROXYPROGESTERONE ACETATE
     Dosage: 150 MG/ML, UNK
     Dates: start: 20050804, end: 20050804
  18. DEPO-PROVERA [Suspect]
     Active Substance: MEDROXYPROGESTERONE ACETATE
     Dosage: 150 MG/ML, UNK
     Dates: start: 20060405, end: 20060405
  19. LAMISIL [Concomitant]
     Active Substance: TERBINAFINE HYDROCHLORIDE
     Dosage: 1%
     Dates: start: 20051021
  20. CLINDOXYL [Concomitant]
     Active Substance: BENZOYL PEROXIDE\CLINDAMYCIN PHOSPHATE
     Dosage: 1-5%
     Dates: start: 20030506
  21. CIPRO XL [Concomitant]
     Active Substance: CIPROFLOXACIN\CIPROFLOXACIN HYDROCHLORIDE
     Dosage: 1000 MG, UNK
     Dates: start: 20080529
  22. PMS-FLUCONAZOLE [Concomitant]
     Dosage: 150 MG, UNK
     Dates: start: 20070801
  23. NORFLOXACINUM [Concomitant]
     Dosage: 400 MG, UNK
     Dates: start: 20060626
  24. AMOXICILLIN. [Concomitant]
     Active Substance: AMOXICILLIN
     Dosage: 500 MG, UNK
     Dates: start: 20020626
  25. ORACORT [PREDNISONE] [Concomitant]
     Dosage: UNK
     Dates: start: 20020114
  26. NAPROXEN. [Concomitant]
     Active Substance: NAPROXEN
     Dosage: 375 MG, UNK
     Dates: start: 20011108
  27. MARVELON [Concomitant]
     Active Substance: DESOGESTREL\ETHINYL ESTRADIOL
     Dosage: UNK
     Dates: start: 20000221
  28. DEPO-PROVERA [Suspect]
     Active Substance: MEDROXYPROGESTERONE ACETATE
     Dosage: 150 MG/ML, UNK
     Dates: start: 20040105, end: 20040105
  29. DEPO-PROVERA [Suspect]
     Active Substance: MEDROXYPROGESTERONE ACETATE
     Dosage: 150 MG/ML, UNK
     Dates: start: 20050228, end: 20050228
  30. NOVAMOXIN [Concomitant]
     Active Substance: AMOXICILLIN
     Dosage: 500 MG, UNK
     Dates: start: 20041211
  31. NOVO-LEXIN [Concomitant]
     Active Substance: CEPHALEXIN
     Dosage: 500 MG, UNK
     Dates: start: 20030904
  32. DEPO-PROVERA [Suspect]
     Active Substance: MEDROXYPROGESTERONE ACETATE
     Dosage: 150 MG/ML, UNK
     Dates: start: 20040325, end: 20040325
  33. DEPO-PROVERA [Suspect]
     Active Substance: MEDROXYPROGESTERONE ACETATE
     Dosage: 150 MG/ML, UNK
     Dates: start: 20050523, end: 20050523
  34. RATIO-CYCLOBENZAPRINE [Concomitant]
     Dosage: 10 MG, UNK
     Dates: start: 20031205
  35. MICRONOR [Concomitant]
     Active Substance: NORETHINDRONE
     Dosage: 28-DAY 0.35 MG
     Dates: start: 20061008
  36. NOVO-PRANOL [Concomitant]
     Active Substance: PROPRANOLOL HYDROCHLORIDE
     Dosage: 10 MG, UNK
     Dates: start: 20000519
  37. DEPO-PROVERA [Suspect]
     Active Substance: MEDROXYPROGESTERONE ACETATE
     Dosage: 150 MG/ML
     Dates: start: 20040805, end: 20040805
  38. DEPO-PROVERA [Suspect]
     Active Substance: MEDROXYPROGESTERONE ACETATE
     Dosage: 150 MG/ML, UNK
     Dates: start: 20040823, end: 20040823
  39. DEPO-PROVERA [Suspect]
     Active Substance: MEDROXYPROGESTERONE ACETATE
     Dosage: 150 MG/ML, UNK
     Dates: start: 20051021, end: 20051021
  40. APO-AMOXI [Concomitant]
     Active Substance: AMOXICILLIN
     Dosage: 250 MG, UNK
     Dates: start: 20051219
  41. MIRENA [Concomitant]
     Active Substance: LEVONORGESTREL
     Dosage: 20 UG, 1X/DAY
     Dates: start: 20061122
  42. MACROBID [CLARITHROMYCIN] [Concomitant]
     Active Substance: CLARITHROMYCIN
     Dosage: 10 MG, UNK
     Dates: start: 20061021

REACTIONS (1)
  - Femoral neck fracture [Unknown]

NARRATIVE: CASE EVENT DATE: 20060608
